FAERS Safety Report 4522294-4 (Version None)
Quarter: 2004Q4

REPORT INFORMATION
  Report Type: 
  Country: None (occurrence: None)
  Receive Date: 20041207
  Receipt Date: 20041118
  Transmission Date: 20050328
  Serious: Yes (Hospitalization, Other)
  Sender: FDA-Public Use
  Company Number: USA041184104

PATIENT
  Age: 51 Year
  Sex: Male

DRUGS (7)
  1. CYMBALTA [Suspect]
     Indication: DEPRESSION
     Dates: start: 20041101, end: 20041118
  2. MOTRIN [Concomitant]
  3. NICODERM [Concomitant]
  4. MS CONTIN [Concomitant]
  5. AMBIEN [Concomitant]
  6. FLONASE [Concomitant]
  7. LOPRESSOR [Concomitant]

REACTIONS (8)
  - ALANINE AMINOTRANSFERASE INCREASED [None]
  - ASPARTATE AMINOTRANSFERASE INCREASED [None]
  - BLOOD CHLORIDE DECREASED [None]
  - DRUG SCREEN POSITIVE [None]
  - HALLUCINATION [None]
  - NAUSEA [None]
  - RENAL FAILURE ACUTE [None]
  - VOMITING [None]
